FAERS Safety Report 24703187 (Version 7)
Quarter: 2025Q1

REPORT INFORMATION
  Report Type: Spontaneous
  Country: AR (occurrence: AR)
  Receive Date: 20241205
  Receipt Date: 20250227
  Transmission Date: 20250409
  Serious: No
  Sender: PFIZER
  Company Number: AR-PFIZER INC-202400313128

PATIENT
  Age: 4 Year
  Sex: Female

DRUGS (1)
  1. GENOTROPIN [Suspect]
     Active Substance: SOMATROPIN
     Indication: Short stature
     Dates: start: 20241007

REACTIONS (6)
  - Device issue [Unknown]
  - Device leakage [Unknown]
  - Product odour abnormal [Unknown]
  - Poor quality device used [Unknown]
  - Drug dose omission by device [Unknown]
  - Product dispensing error [Unknown]

NARRATIVE: CASE EVENT DATE: 20241126
